FAERS Safety Report 8765301 (Version 3)
Quarter: 2013Q4

REPORT INFORMATION
  Report Type: Report from Study
  Country: JP (occurrence: JP)
  Receive Date: 20120831
  Receipt Date: 20131204
  Transmission Date: 20140711
  Serious: Yes (Hospitalization)
  Sender: FDA-Public Use
  Company Number: JP-VERTEX PHARMACEUTICAL INC.-AE-2012-009539

PATIENT
  Age: 64 Year
  Sex: Male

DRUGS (13)
  1. VX-950 (TELAPREVIR) [Suspect]
     Indication: CHRONIC HEPATITIS C
     Dosage: 2250 MG, QD
     Route: 048
     Dates: start: 20120618, end: 20120621
  2. VX-950 (TELAPREVIR) [Suspect]
     Dosage: 1500 MG, QD
     Route: 048
     Dates: start: 20120625, end: 20120724
  3. RIBAVIRIN [Suspect]
     Indication: CHRONIC HEPATITIS C
     Dosage: 800 MG, QD
     Route: 048
     Dates: start: 20120618, end: 20120724
  4. RIBAVIRIN [Suspect]
     Dosage: 200 MG, QD
     Route: 048
     Dates: start: 20120731
  5. PEGINTRON [Suspect]
     Indication: CHRONIC HEPATITIS C
     Dosage: 1.5 ?G/KG, QW
     Route: 058
     Dates: start: 20120618, end: 20120717
  6. PEGINTRON [Suspect]
     Dosage: 1.5 ?G/KG, QW
     Route: 058
     Dates: start: 20120731
  7. GLACTIV [Concomitant]
     Dosage: 100 MG, QD
  8. METGLUCO [Concomitant]
     Dosage: 500 MG, QD
     Route: 048
  9. METGLUCO [Concomitant]
     Dosage: 500 MG, QD, AS NEEDED
  10. LENDORMIN [Concomitant]
     Dosage: 0.25 MG, QD PRN
     Route: 048
  11. PREDNISOLONE [Concomitant]
     Dosage: 1 MG, QD
     Route: 048
     Dates: start: 20120731, end: 20120802
  12. GASTER D [Concomitant]
     Dosage: 20 MG, QD
     Route: 048
     Dates: start: 20120731
  13. METACT [Concomitant]
     Dosage: 1 DF, QD
     Route: 048

REACTIONS (1)
  - Erythema multiforme [Recovered/Resolved]
